FAERS Safety Report 5233589-3 (Version None)
Quarter: 2007Q1

REPORT INFORMATION
  Report Type: 
  Country: None (occurrence: None)
  Receive Date: 20070208
  Receipt Date: 20070129
  Transmission Date: 20070707
  Serious: Yes (Disabling)
  Sender: FDA-Public Use
  Company Number: GBWYE656327NOV06

PATIENT
  Sex: Female
  Weight: 97 kg

DRUGS (15)
  1. ENBREL [Suspect]
     Indication: PSORIASIS
     Route: 058
     Dates: start: 20061004, end: 20061120
  2. ENBREL [Suspect]
     Route: 058
  3. NITROFURANTOIN [Concomitant]
     Dosage: 100MG, FREQUENCY UNKNOWN
  4. DIHYDROCODEINE BITARTRATE INJ [Concomitant]
     Dosage: 30MG, ONE OR TWO TABLETS TAKEN THREE TIMES A DAY AS REQUIRED
  5. DIPYRIDAMOLE [Concomitant]
  6. QUININE SULFATE [Concomitant]
  7. FLUVASTATIN [Concomitant]
  8. CLOBETASOL PROPIONATE [Concomitant]
     Dosage: UNKNOWN
  9. AMLODIPINE [Concomitant]
  10. HYDROXYZINE HYDROCHLORIDE [Concomitant]
  11. LEVOTHYROXINE SODIUM [Concomitant]
     Dosage: 50 UG, FREQUENCY UNKNOWN
  12. TEMAZEPAM [Concomitant]
  13. AMITRIPTYLINE HYDROCHLORIDE [Concomitant]
  14. INSULIN [Concomitant]
     Indication: DIABETES MELLITUS INSULIN-DEPENDENT
  15. LANTUS [Concomitant]
     Dosage: 100 UNITS/ML, 3 ML CARTRIDGE, FREQUENCY UNKNOWN

REACTIONS (1)
  - HYPOGLYCAEMIA [None]
